FAERS Safety Report 8816066 (Version 1)
Quarter: 2012Q4

REPORT INFORMATION
  Report Type: 
  Country: US (occurrence: US)
  Receive Date: 20120928
  Receipt Date: 20120928
  Transmission Date: 20130627
  Serious: Yes (Other)
  Sender: FDA-Public Use
  Company Number: US-PFIZER INC-2012239911

PATIENT
  Sex: Female

DRUGS (3)
  1. LYRICA [Suspect]
     Indication: NECK PAIN
     Dosage: 75mg capsule once in the morning + 150mg capsule once at night
     Route: 048
     Dates: start: 201102, end: 2011
  2. LYRICA [Suspect]
     Dosage: 75 mg, 2x/day
     Route: 048
     Dates: start: 2011, end: 201202
  3. LYRICA [Suspect]
     Dosage: 25 mg, every 3 weeks
     Route: 048
     Dates: start: 201202, end: 2012

REACTIONS (12)
  - Arthritis [Unknown]
  - Anxiety [Not Recovered/Not Resolved]
  - Neck pain [Unknown]
  - Neuralgia [Unknown]
  - Neuropathy peripheral [Unknown]
  - Muscle disorder [Unknown]
  - Burning sensation [Unknown]
  - Nausea [Unknown]
  - Insomnia [Unknown]
  - Feeling abnormal [Unknown]
  - Activities of daily living impaired [Unknown]
  - Drug administration error [Unknown]
